FAERS Safety Report 9708412 (Version 3)
Quarter: 2014Q2

REPORT INFORMATION
  Report Type: Spontaneous
  Country: IT (occurrence: IT)
  Receive Date: 20131125
  Receipt Date: 20140609
  Transmission Date: 20141212
  Serious: Yes (Other)
  Sender: FDA-Public Use
  Company Number: IT-TEVA-445479ISR

PATIENT
  Age: 75 Year
  Sex: Male
  Weight: 89 kg

DRUGS (5)
  1. FLUOROURACILE TEVA [Suspect]
     Indication: RECTOSIGMOID CANCER
     Route: 042
     Dates: start: 20130806, end: 20131023
  2. AVASTIN [Suspect]
     Indication: RECTOSIGMOID CANCER
     Dosage: 400 MILLIGRAM DAILY; CONCETRATE FOR SOLUTION FOR INFUSION
     Route: 042
     Dates: start: 20130820, end: 20130917
  3. IRINOTECAN KABI [Suspect]
     Indication: RECTOSIGMOID CANCER
     Dosage: 340 MILLIGRAM DAILY;
     Route: 042
     Dates: start: 20130806, end: 20131022
  4. SOLDESAM [Concomitant]
     Indication: PROPHYLAXIS OF NAUSEA AND VOMITING
     Route: 042
     Dates: start: 20130806, end: 20130823
  5. ALOXI [Concomitant]
     Indication: PROPHYLAXIS OF NAUSEA AND VOMITING
     Route: 042
     Dates: start: 20130806, end: 20131022

REACTIONS (3)
  - Subclavian vein thrombosis [Recovered/Resolved]
  - Deep vein thrombosis [Recovered/Resolved]
  - Oedema [Recovered/Resolved]
